FAERS Safety Report 25274982 (Version 1)
Quarter: 2025Q2

REPORT INFORMATION
  Report Type: Spontaneous
  Country: NL (occurrence: NL)
  Receive Date: 20250506
  Receipt Date: 20250506
  Transmission Date: 20250717
  Serious: Yes (Life-Threatening, Other)
  Sender: PFIZER
  Company Number: NL-PFIZER INC-202500093361

PATIENT
  Age: 50 Year
  Sex: Female

DRUGS (4)
  1. VORICONAZOLE [Suspect]
     Active Substance: VORICONAZOLE
     Indication: Bronchopulmonary aspergillosis
     Dosage: 4 MG/KG, 2X/DAY
     Route: 042
  2. ANIDULAFUNGIN [Suspect]
     Active Substance: ANIDULAFUNGIN
     Indication: Bronchopulmonary aspergillosis
  3. ANIDULAFUNGIN [Suspect]
     Active Substance: ANIDULAFUNGIN
     Dosage: 100 MG, DAILY
  4. AMPHOTERICIN B [Suspect]
     Active Substance: AMPHOTERICIN B
     Indication: Bronchopulmonary aspergillosis
     Dosage: 5-10MG, 2X/DAY (BI-DAILY)
     Route: 055

REACTIONS (1)
  - Drug ineffective [Unknown]
